APPROVED DRUG PRODUCT: NYSTATIN AND TRIAMCINOLONE ACETONIDE
Active Ingredient: NYSTATIN; TRIAMCINOLONE ACETONIDE
Strength: 100,000 UNITS/GM;0.1%
Dosage Form/Route: CREAM;TOPICAL
Application: A063010 | Product #001
Applicant: ALPHARMA US PHARMACEUTICALS DIVISION
Approved: Dec 20, 1988 | RLD: No | RS: No | Type: DISCN